FAERS Safety Report 5623559-5 (Version None)
Quarter: 2008Q1

REPORT INFORMATION
  Report Type: 
  Country: None (occurrence: None)
  Receive Date: 20080129
  Receipt Date: 20071011
  Transmission Date: 20080703
  Serious: Yes (Life-Threatening)
  Sender: FDA-Public Use
  Company Number: WAES 0710USA02773

PATIENT
  Age: 40 Year
  Sex: Male

DRUGS (2)
  1. INVANZ [Suspect]
     Indication: LOCALISED INFECTION
     Dosage: 1 GM/1X/IV
     Route: 042
     Dates: start: 20070901, end: 20070901
  2. ALEVE [Concomitant]

REACTIONS (4)
  - ANAPHYLACTIC REACTION [None]
  - DIZZINESS [None]
  - NAUSEA [None]
  - VERTIGO [None]
